FAERS Safety Report 9503871 (Version 1)
Quarter: 2013Q3

REPORT INFORMATION
  Report Type: Spontaneous
  Country: US (occurrence: None)
  Receive Date: 20130905
  Receipt Date: 20130905
  Transmission Date: 20140515
  Serious: No
  Sender: FDA-Public Use
  Company Number: None

PATIENT
  Age: 92 Year
  Sex: Female
  Weight: 53.52 kg

DRUGS (1)
  1. NORCO [Suspect]
     Indication: PAIN
     Dosage: AS NEEDED
     Dates: start: 20130409, end: 20130410

REACTIONS (7)
  - Hallucination [None]
  - Incoherent [None]
  - Sensory disturbance [None]
  - Memory impairment [None]
  - Panic reaction [None]
  - Tremor [None]
  - Product substitution issue [None]
